FAERS Safety Report 9633865 (Version 1)
Quarter: 2013Q4

REPORT INFORMATION
  Report Type: Spontaneous
  Country: CA (occurrence: CA)
  Receive Date: 20131021
  Receipt Date: 20131021
  Transmission Date: 20140711
  Serious: Yes (Hospitalization)
  Sender: FDA-Public Use
  Company Number: CA-INCYTE CORPORATION-2013IN002425

PATIENT
  Age: 76 Year
  Sex: Female

DRUGS (2)
  1. JAKAVI [Suspect]
     Dosage: 20 MG, BID
     Route: 065
  2. JAKAVI [Suspect]
     Dosage: UNK UNK, UNK
     Route: 065

REACTIONS (2)
  - Platelet count decreased [Unknown]
  - Creatinine renal clearance decreased [Unknown]
